FAERS Safety Report 20949315 (Version 5)
Quarter: 2022Q3

REPORT INFORMATION
  Report Type: Spontaneous
  Country: US (occurrence: US)
  Receive Date: 20220613
  Receipt Date: 20220905
  Transmission Date: 20221026
  Serious: Yes (Other)
  Sender: FDA-Public Use
  Company Number: US-BRISTOL-MYERS SQUIBB COMPANY-2022-053155

PATIENT
  Age: 73 Year
  Sex: Female

DRUGS (2)
  1. REVLIMID [Suspect]
     Active Substance: LENALIDOMIDE
     Indication: Plasma cell myeloma
     Dosage: TAKE 1 CAPSULE BY MOUTH WHOLE  DAILY WITH WATER AT THE SAME TIME EACH DAY ON DAYS 1-14 OF EACH 21 DA
     Route: 048
     Dates: start: 20220512
  2. REVLIMID [Suspect]
     Active Substance: LENALIDOMIDE
     Dosage: TAKE 1 CAPSULE BY MOUTH WHOLE WITH WATER AT THE SAME TIME FOR 2 DAYS, THEN OFF FOR 1 DAY FOR 14 DAYS
     Route: 048

REACTIONS (6)
  - Thoracic vertebral fracture [Unknown]
  - Back disorder [Unknown]
  - Dyspepsia [Unknown]
  - Gastrooesophageal reflux disease [Recovered/Resolved]
  - Off label use [Unknown]
  - Diarrhoea [Unknown]
